FAERS Safety Report 5781395-3 (Version None)
Quarter: 2008Q2

REPORT INFORMATION
  Report Type: 
  Country: None (occurrence: None)
  Receive Date: 20080623
  Receipt Date: 20080612
  Transmission Date: 20081010
  Serious: Yes (Other)
  Sender: FDA-Public Use
  Company Number: GB-NOVOPROD-274464

PATIENT
  Sex: Female
  Weight: 89 kg

DRUGS (1)
  1. HUMAN MIXTARD 30 HM(GE) [Suspect]
     Indication: DIABETES MELLITUS
     Dosage: 6 IU, BID
     Route: 058
     Dates: start: 20080418, end: 20080421

REACTIONS (4)
  - HEART RATE INCREASED [None]
  - MALAISE [None]
  - MUSCULOSKELETAL CHEST PAIN [None]
  - TACHYCARDIA [None]
